FAERS Safety Report 21026625 (Version 1)
Quarter: 2022Q2

REPORT INFORMATION
  Report Type: Spontaneous
  Country: JP (occurrence: JP)
  Receive Date: 20220630
  Receipt Date: 20220630
  Transmission Date: 20220720
  Serious: Yes (Hospitalization)
  Sender: FDA-Public Use
  Company Number: JP-ONO-2022JP017562

PATIENT
  Age: 72 Year
  Sex: Male
  Weight: 55.8 kg

DRUGS (13)
  1. PARSABIV [Suspect]
     Active Substance: ETELCALCETIDE HYDROCHLORIDE
     Indication: Hyperparathyroidism secondary
     Dosage: 5 MG, Q56H
     Route: 010
     Dates: start: 20190727, end: 20200227
  2. PARSABIV [Suspect]
     Active Substance: ETELCALCETIDE HYDROCHLORIDE
     Dosage: 5 MG, Q84H
     Route: 065
     Dates: start: 20200229, end: 20200319
  3. PARSABIV [Suspect]
     Active Substance: ETELCALCETIDE HYDROCHLORIDE
     Dosage: 2.5 MG, QW
     Route: 065
     Dates: start: 20200229, end: 20200319
  4. PARSABIV [Suspect]
     Active Substance: ETELCALCETIDE HYDROCHLORIDE
     Dosage: 2.5 MG, Q56H
     Route: 065
     Dates: start: 20200321, end: 20200416
  5. PARSABIV [Suspect]
     Active Substance: ETELCALCETIDE HYDROCHLORIDE
     Dosage: 2.5 MG, Q84H
     Route: 065
     Dates: start: 20200418
  6. ALFACALCIDOL [Concomitant]
     Active Substance: ALFACALCIDOL
     Dosage: 0.25 UG, EVERYDAY
     Route: 048
     Dates: end: 20200620
  7. OXAROL [Concomitant]
     Active Substance: MAXACALCITOL
     Dosage: 2.5 UG, Q84H
     Route: 065
     Dates: start: 20200822, end: 20210622
  8. OXAROL [Concomitant]
     Active Substance: MAXACALCITOL
     Dosage: 2.5 UG, Q56H
     Dates: start: 20210626
  9. CALCIUM CARBONATE [Concomitant]
     Active Substance: CALCIUM CARBONATE
     Dosage: 3000 MG, EVERYDAY
     Route: 048
  10. FOSRENOL [Concomitant]
     Active Substance: LANTHANUM CARBONATE
     Dosage: 2250 MG, EVERYDAY
     Route: 048
  11. Fesin [Concomitant]
     Dosage: 40 MG, QW
     Route: 042
     Dates: start: 20210220, end: 20210313
  12. Fesin [Concomitant]
     Dosage: 40 MG, QW
     Dates: start: 20210617, end: 20210710
  13. Fesin [Concomitant]
     Dosage: 40 MG, QW
     Dates: start: 20210819, end: 20211023

REACTIONS (3)
  - Peripheral arterial occlusive disease [Recovering/Resolving]
  - Peripheral arterial occlusive disease [Recovering/Resolving]
  - Chills [Unknown]

NARRATIVE: CASE EVENT DATE: 20220204
